FAERS Safety Report 9468309 (Version 2)
Quarter: 2013Q3

REPORT INFORMATION
  Report Type: Spontaneous
  Country: US (occurrence: US)
  Receive Date: 20130821
  Receipt Date: 20130821
  Transmission Date: 20140515
  Serious: Yes (Other)
  Sender: FDA-Public Use
  Company Number: US-ELI_LILLY_AND_COMPANY-US_980503262

PATIENT
  Age: 35 Year
  Sex: Male

DRUGS (1)
  1. PROZAC [Suspect]
     Indication: DEPRESSION
     Dosage: 40 MG, DAILY (1/D)
     Route: 048

REACTIONS (7)
  - Hepatitis [Recovered/Resolved]
  - Hepatic necrosis [Recovered/Resolved]
  - Hepatic fibrosis [Recovered/Resolved]
  - Fatigue [Unknown]
  - Hepatomegaly [Recovered/Resolved]
  - Sleep apnoea syndrome [Unknown]
  - Liver injury [Recovered/Resolved]
